FAERS Safety Report 16658972 (Version 2)
Quarter: 2019Q3

REPORT INFORMATION
  Report Type: Spontaneous
  Country: AD (occurrence: AD)
  Receive Date: 20190801
  Receipt Date: 20190808
  Transmission Date: 20191004
  Serious: Yes (Death, Other)
  Sender: FDA-Public Use
  Company Number: AD-ABBVIE-19K-004-2874495-00

PATIENT
  Age: 78 Year
  Sex: Female

DRUGS (1)
  1. MAVIRET [Suspect]
     Active Substance: GLECAPREVIR\PIBRENTASVIR
     Indication: HEPATITIS
     Dosage: 300/120
     Route: 048
     Dates: start: 20181024, end: 20190109

REACTIONS (13)
  - Hyponatraemia [Unknown]
  - Hepatic encephalopathy [Fatal]
  - Hepatic cyst [Unknown]
  - Pain [Unknown]
  - Ascites [Fatal]
  - Hepatic cirrhosis [Unknown]
  - Renal failure [Unknown]
  - Hepatic lesion [Fatal]
  - Hepatocellular carcinoma [Fatal]
  - Portal vein thrombosis [Fatal]
  - Hepatic cancer [Unknown]
  - Discomfort [Unknown]
  - Hyperkalaemia [Unknown]

NARRATIVE: CASE EVENT DATE: 2019
